FAERS Safety Report 20946298 (Version 1)
Quarter: 2022Q2

REPORT INFORMATION
  Report Type: Spontaneous
  Country: DE (occurrence: DE)
  Receive Date: 20220610
  Receipt Date: 20220610
  Transmission Date: 20220721
  Serious: Yes (Other)
  Sender: FDA-Public Use
  Company Number: DE-BIOMARINAP-DE-2022-143607

PATIENT
  Age: 45 Year
  Sex: Male

DRUGS (1)
  1. NAGLAZYME [Suspect]
     Active Substance: GALSULFASE
     Indication: Mucopolysaccharidosis VI
     Dosage: 70 MILLIGRAM, QW
     Route: 042

REACTIONS (6)
  - Hypertension [Recovered/Resolved]
  - Tachycardia [Not Recovered/Not Resolved]
  - Tremor [Not Recovered/Not Resolved]
  - Cold sweat [Recovering/Resolving]
  - Discomfort [Not Recovered/Not Resolved]
  - Illness [Recovering/Resolving]

NARRATIVE: CASE EVENT DATE: 20220527
